FAERS Safety Report 6045248-8 (Version None)
Quarter: 2009Q1

REPORT INFORMATION
  Report Type: 
  Country: None (occurrence: None)
  Receive Date: 20090121
  Receipt Date: 20090108
  Transmission Date: 20090719
  Serious: Yes (Hospitalization)
  Sender: FDA-Public Use
  Company Number: PHHY2009DE00898

PATIENT
  Sex: Female
  Weight: 4.5 kg

DRUGS (1)
  1. PRAVIDEL [Suspect]
     Dosage: 2.5 MG
     Route: 048
     Dates: start: 20081213, end: 20081213

REACTIONS (1)
  - ACCIDENTAL DRUG INTAKE BY CHILD [None]
